FAERS Safety Report 11376526 (Version 1)
Quarter: 2015Q3

REPORT INFORMATION
  Report Type: Other
  Country: GB (occurrence: GB)
  Receive Date: 20150813
  Receipt Date: 20150813
  Transmission Date: 20151125
  Serious: Yes (Other)
  Sender: FDA-Public Use
  Company Number: GB-PERRIGO-15GB008319

PATIENT
  Age: 22 Year
  Sex: Female
  Weight: 53.52 kg

DRUGS (1)
  1. LORATADINE. [Suspect]
     Active Substance: LORATADINE
     Indication: MILIARIA
     Dosage: 1 DF, QD
     Route: 048

REACTIONS (1)
  - Sneezing [Recovering/Resolving]
